FAERS Safety Report 6686961-9 (Version None)
Quarter: 2010Q2

REPORT INFORMATION
  Report Type: 
  Country: None (occurrence: None)
  Receive Date: 20100419
  Receipt Date: 20100415
  Transmission Date: 20101027
  Serious: Yes (Death)
  Sender: FDA-Public Use
  Company Number: PHHY2010MX23936

PATIENT
  Sex: Female

DRUGS (2)
  1. ZOMETA [Suspect]
     Indication: HYPERCALCAEMIA
     Dosage: 4 MG ONCE A YEAR
     Route: 042
     Dates: start: 20080101, end: 20100104
  2. CAPTOPRIL [Concomitant]
     Dosage: UNK
     Dates: start: 20100101

REACTIONS (1)
  - DEATH [None]
